FAERS Safety Report 4667203-2 (Version None)
Quarter: 2005Q2

REPORT INFORMATION
  Report Type: 
  Country: None (occurrence: None)
  Receive Date: 20050520
  Receipt Date: 20040622
  Transmission Date: 20051028
  Serious: No
  Sender: FDA-Public Use
  Company Number: US-BRISTOL-MYERS SQUIBB COMPANY-12626917

PATIENT
  Age: 76 Year
  Sex: Male

DRUGS (4)
  1. SINEMET [Suspect]
     Indication: PARKINSON'S DISEASE
     Route: 048
  2. MIRAPEX [Concomitant]
  3. SYNTHROID [Concomitant]
  4. EZETIMIBE [Concomitant]

REACTIONS (2)
  - HYPERSENSITIVITY [None]
  - LIBIDO INCREASED [None]
